FAERS Safety Report 5728211-3 (Version None)
Quarter: 2008Q2

REPORT INFORMATION
  Report Type: 
  Country: None (occurrence: None)
  Receive Date: 20080506
  Receipt Date: 20080428
  Transmission Date: 20081010
  Serious: Yes (Other)
  Sender: FDA-Public Use
  Company Number: PT-RANBAXY-2008RR-14750

PATIENT

DRUGS (1)
  1. TANSULOSINA RANBAXY 0.4MG CAPSULAS DE LIBERTACAO PROLONGADA [Suspect]

REACTIONS (1)
  - DRUG INEFFECTIVE [None]
